FAERS Safety Report 4919680-7 (Version None)
Quarter: 2006Q1

REPORT INFORMATION
  Report Type: 
  Country: None (occurrence: None)
  Receive Date: 20060221
  Receipt Date: 20060208
  Transmission Date: 20060701
  Serious: Yes (Other)
  Sender: FDA-Public Use
  Company Number: 2006019792

PATIENT
  Sex: Female

DRUGS (1)
  1. XALATAN [Suspect]
     Indication: ILL-DEFINED DISORDER

REACTIONS (4)
  - HAEMOCHROMATOSIS [None]
  - MALIGNANT MELANOMA [None]
  - SKIN DISORDER [None]
  - SKIN HYPERPIGMENTATION [None]
